FAERS Safety Report 7690857-3 (Version None)
Quarter: 2011Q3

REPORT INFORMATION
  Report Type: 
  Country: None (occurrence: None)
  Receive Date: 20110818
  Receipt Date: 20110808
  Transmission Date: 20111222
  Serious: Yes (Hospitalization)
  Sender: FDA-Public Use
  Company Number: PHHY2011FR71418

PATIENT
  Age: 70 Year
  Sex: Female

DRUGS (4)
  1. EXJADE [Suspect]
     Indication: REFRACTORY ANAEMIA
     Dosage: 4 DF, DAILY
     Route: 048
     Dates: start: 20070101, end: 20110720
  2. INDAPAMIDE [Suspect]
     Dosage: 2.5 MG, DAILY
     Dates: end: 20110720
  3. NIFEDIPINE [Suspect]
     Dosage: 1 DF, BID
     Route: 048
     Dates: end: 20110720
  4. POTASSIUM CHLORIDE [Suspect]
     Dosage: 1 DF, TID
     Route: 048
     Dates: end: 20110720

REACTIONS (8)
  - OCULAR ICTERUS [None]
  - PANCREATITIS ACUTE [None]
  - ABDOMINAL PAIN [None]
  - VOMITING [None]
  - PAIN [None]
  - ABDOMINAL DISTENSION [None]
  - THROMBOCYTOPENIA [None]
  - HYPOKALAEMIA [None]
